FAERS Safety Report 19476128 (Version 2)
Quarter: 2021Q4

REPORT INFORMATION
  Report Type: Other
  Country: None (occurrence: IT)
  Receive Date: 20210630
  Receipt Date: 20211105
  Transmission Date: 20220303
  Serious: Yes (Other)
  Sender: FDA-Public Use
  Company Number: IT-FDC LIMITED-2113295

PATIENT
  Age: 60 Year
  Sex: Female

DRUGS (2)
  1. CIPROFLOXACIN [Suspect]
     Active Substance: CIPROFLOXACIN
     Indication: Pyrexia
     Route: 048
     Dates: start: 20201025, end: 20201105
  2. PRALSETINIB [Interacting]
     Active Substance: PRALSETINIB
     Route: 048
     Dates: start: 20200814, end: 20201029

REACTIONS (4)
  - Asthenia [Recovered/Resolved]
  - Febrile neutropenia [Recovered/Resolved]
  - Thrombocytopenia [Recovered/Resolved]
  - Drug interaction [Recovered/Resolved]

NARRATIVE: CASE EVENT DATE: 20200101
